FAERS Safety Report 5246687-5 (Version None)
Quarter: 2007Q1

REPORT INFORMATION
  Report Type: 
  Country: None (occurrence: None)
  Receive Date: 20070226
  Receipt Date: 20070221
  Transmission Date: 20070707
  Serious: Yes (Death, Hospitalization)
  Sender: FDA-Public Use
  Company Number: US-SANOFI-SYNTHELABO-F03200700039

PATIENT
  Sex: Male

DRUGS (9)
  1. OXALIPLATIN [Suspect]
     Indication: COLON CANCER METASTATIC
     Route: 042
  2. FOLINIC ACID [Concomitant]
     Route: 042
  3. OXYCODONE HCL [Concomitant]
     Dosage: UNK
     Route: 048
  4. MORPHINE SULFATE [Concomitant]
     Dosage: UNK
     Route: 048
  5. ACETAMINOPHEN AND OXYCODONE HCL [Concomitant]
     Dosage: UNK
     Route: 048
  6. LOMOTIL [Concomitant]
     Dosage: UNK
     Route: 048
  7. PANTOPRAZOLE SODIUM [Concomitant]
     Dosage: UNK
     Route: 048
  8. BEVACIZUMAB [Concomitant]
     Route: 042
  9. PANITUMUMAB [Suspect]
     Indication: COLON CANCER METASTATIC
     Route: 042
     Dates: start: 20050727

REACTIONS (3)
  - COLON CANCER [None]
  - DISEASE PROGRESSION [None]
  - URINARY RETENTION [None]
